FAERS Safety Report 8173899-3 (Version None)
Quarter: 2012Q1

REPORT INFORMATION
  Report Type: 
  Country: None (occurrence: None)
  Receive Date: 20120229
  Receipt Date: 20120216
  Transmission Date: 20120608
  Serious: Yes (Hospitalization, Other)
  Sender: FDA-Public Use
  Company Number: US-ELI_LILLY_AND_COMPANY-US201011006959

PATIENT
  Sex: Female

DRUGS (4)
  1. FORTEO [Suspect]
     Indication: OSTEOPOROSIS
     Dosage: 20 UG, DAILY (1/D)
     Route: 065
  2. FORTEO [Suspect]
     Dosage: 20 UG, DAILY (1/D)
     Route: 065
  3. FORTEO [Suspect]
     Dosage: 20 UG, QD
  4. FORTEO [Suspect]
     Dosage: 20 UG, DAILY (1/D)
     Route: 065

REACTIONS (16)
  - HOT FLUSH [None]
  - BLOOD CALCIUM INCREASED [None]
  - BACK DISORDER [None]
  - JOINT DISLOCATION [None]
  - PULMONARY HYPERTENSION [None]
  - CALCINOSIS [None]
  - CHRONIC OBSTRUCTIVE PULMONARY DISEASE [None]
  - CARDIAC DISORDER [None]
  - FATIGUE [None]
  - ASTHENIA [None]
  - PNEUMONIA [None]
  - TREMOR [None]
  - INJECTION SITE DISCOMFORT [None]
  - LUNG DISORDER [None]
  - MALAISE [None]
  - EYE IRRITATION [None]
